FAERS Safety Report 15745165 (Version 1)
Quarter: 2018Q4

REPORT INFORMATION
  Report Type: Spontaneous
  Country: EE (occurrence: EE)
  Receive Date: 20181220
  Receipt Date: 20181220
  Transmission Date: 20190205
  Serious: Yes (Life-Threatening, Hospitalization)
  Sender: FDA-Public Use
  Company Number: EE-PFIZER INC-3206959

PATIENT
  Age: 57 Year
  Sex: Female
  Weight: 97 kg

DRUGS (1)
  1. METHOTREXATE SODIUM. [Suspect]
     Active Substance: METHOTREXATE SODIUM
     Indication: RHEUMATOID ARTHRITIS
     Dosage: 12.5 MG, FREQ: 1 DAY; INTERVAL: 1
     Route: 048
     Dates: start: 20150130, end: 20160212

REACTIONS (9)
  - Abdominal pain lower [Recovered/Resolved]
  - Pancytopenia [Recovered/Resolved]
  - Gastrointestinal wall thickening [Unknown]
  - Haematochezia [Recovered/Resolved]
  - Pyrexia [Recovered/Resolved]
  - Aphthous ulcer [Recovered/Resolved]
  - Inappropriate schedule of product administration [Recovered/Resolved]
  - Accidental overdose [Unknown]
  - C-reactive protein increased [Recovered/Resolved]

NARRATIVE: CASE EVENT DATE: 20160130
